FAERS Safety Report 12593661 (Version 1)
Quarter: 2016Q3

REPORT INFORMATION
  Report Type: Spontaneous
  Country: CH (occurrence: CH)
  Receive Date: 20160726
  Receipt Date: 20160726
  Transmission Date: 20161109
  Serious: Yes (Hospitalization)
  Sender: FDA-Public Use
  Company Number: CH-PFIZER INC-2016341346

PATIENT
  Age: 75 Year
  Sex: Female
  Weight: 53 kg

DRUGS (3)
  1. AZITHROMYCIN ANHYDROUS. [Suspect]
     Active Substance: AZITHROMYCIN ANHYDROUS
     Indication: ERYSIPELAS
     Dosage: UNK
     Route: 048
     Dates: start: 20160606, end: 20160606
  2. VITAMIN D [Concomitant]
     Active Substance: CHOLECALCIFEROL
     Dosage: UNK
     Dates: start: 201604
  3. PADMED CIRCOSAN [Concomitant]
     Active Substance: CALCIUM SULFATE\CAMPHOR\HERBALS
     Dosage: UNK
     Dates: start: 201604

REACTIONS (3)
  - Rash [Unknown]
  - Acute generalised exanthematous pustulosis [Recovered/Resolved]
  - Abscess [Recovered/Resolved]

NARRATIVE: CASE EVENT DATE: 20160606
